FAERS Safety Report 25770352 (Version 3)
Quarter: 2025Q4

REPORT INFORMATION
  Report Type: Spontaneous
  Country: EU (occurrence: EU)
  Receive Date: 20250908
  Receipt Date: 20251029
  Transmission Date: 20260117
  Serious: Yes (Hospitalization, Other)
  Sender: BAXTER
  Company Number: EU-BAXTER-2025BAX020466

PATIENT
  Age: 70 Year
  Sex: Male

DRUGS (2)
  1. SODIUM CHLORIDE [Suspect]
     Active Substance: SODIUM CHLORIDE
     Indication: Catheter management
     Dosage: 1000 ML WITH IOMERON 61 ML
     Route: 042
     Dates: start: 20250827, end: 20250827
  2. IOMERON [Suspect]
     Active Substance: IOMEPROL
     Indication: Computerised tomogram
     Dosage: IOMERON 400 1 BTL X 500 ML AT 8.22 A.M., 61 ML , 1 TOTAL WITH NACL (0.9%) 1000 ML
     Route: 042
     Dates: start: 20250827, end: 20250827

REACTIONS (8)
  - Sepsis [Unknown]
  - Pyrexia [Recovered/Resolved]
  - Nausea [Recovered/Resolved]
  - Neutropenia [Recovered/Resolved]
  - Thrombocytopenia [Recovered/Resolved]
  - Malaise [Unknown]
  - Tachycardia [Unknown]
  - Hypotension [Unknown]

NARRATIVE: CASE EVENT DATE: 20250827
